FAERS Safety Report 23921101 (Version 1)
Quarter: 2024Q2

REPORT INFORMATION
  Report Type: Spontaneous
  Country: US (occurrence: None)
  Receive Date: 20240530
  Receipt Date: 20240530
  Transmission Date: 20240716
  Serious: Yes (Hospitalization)
  Sender: FDA-Public Use
  Company Number: None

PATIENT
  Age: 73 Year
  Sex: Male

DRUGS (1)
  1. PREGABALIN [Suspect]
     Active Substance: PREGABALIN
     Indication: Pain
     Dosage: FREQUENCY : TWICE A DAY;?
     Route: 048
     Dates: start: 20221109, end: 20230517

REACTIONS (10)
  - Asterixis [None]
  - Ataxia [None]
  - Vision blurred [None]
  - Dizziness [None]
  - Dyspnoea exertional [None]
  - Asthenia [None]
  - Vertigo positional [None]
  - Dyskinesia [None]
  - Diplopia [None]
  - Therapy interrupted [None]

NARRATIVE: CASE EVENT DATE: 20230519
